FAERS Safety Report 17210944 (Version 2)
Quarter: 2020Q1

REPORT INFORMATION
  Report Type: Report from Study
  Country: US (occurrence: US)
  Receive Date: 20191227
  Receipt Date: 20200107
  Transmission Date: 20200409
  Serious: Yes (Hospitalization)
  Sender: FDA-Public Use
  Company Number: US-ACTELION-A-NJ2019-192701

PATIENT
  Age: 65 Year
  Sex: Female
  Weight: 53.06 kg

DRUGS (4)
  1. AMLODIPINE [Concomitant]
     Active Substance: AMLODIPINE BESYLATE
  2. OPSUMIT [Suspect]
     Active Substance: MACITENTAN
     Indication: PULMONARY ARTERIAL HYPERTENSION
     Dosage: 10 MG, QD
     Route: 048
  3. UPTRAVI [Suspect]
     Active Substance: SELEXIPAG
     Indication: PULMONARY ARTERIAL HYPERTENSION
     Dosage: 400 MCG, BID
     Route: 048
  4. UPTRAVI [Suspect]
     Active Substance: SELEXIPAG
     Dosage: 200 MCG, BID
     Route: 048
     Dates: start: 20190718

REACTIONS (19)
  - Nasopharyngitis [Unknown]
  - Unevaluable event [Recovering/Resolving]
  - Chest pain [Unknown]
  - Palpitations [Unknown]
  - Lethargy [Unknown]
  - Hypotension [Unknown]
  - Pain in jaw [Unknown]
  - Blood pressure systolic increased [Unknown]
  - Infection [Unknown]
  - Tremor [Unknown]
  - Nausea [Unknown]
  - Dyspnoea exertional [Recovering/Resolving]
  - Dyspnoea [Unknown]
  - Vomiting [Unknown]
  - Fatigue [Unknown]
  - Sputum normal [Unknown]
  - Diarrhoea [Recovered/Resolved]
  - Cough [Unknown]
  - Insomnia [Unknown]

NARRATIVE: CASE EVENT DATE: 20190806
